FAERS Safety Report 6187546-3 (Version None)
Quarter: 2009Q2

REPORT INFORMATION
  Report Type: 
  Country: None (occurrence: None)
  Receive Date: 20090508
  Receipt Date: 20090428
  Transmission Date: 20091009
  Serious: Yes (Hospitalization)
  Sender: FDA-Public Use
  Company Number: 20096717

PATIENT
  Sex: Male

DRUGS (3)
  1. BACLOFEN [Suspect]
     Indication: MUSCLE SPASTICITY
     Dosage: INTRATHECAL
     Route: 037
     Dates: start: 20070515
  2. MYONAL [Concomitant]
  3. MOBIC [Concomitant]

REACTIONS (14)
  - ABDOMINAL DISTENSION [None]
  - ABSCESS [None]
  - ASTHENIA [None]
  - CATHETER RELATED INFECTION [None]
  - ERYTHEMA [None]
  - HYPOPHAGIA [None]
  - IMPLANT SITE ERYTHEMA [None]
  - INCONTINENCE [None]
  - MUSCULOSKELETAL STIFFNESS [None]
  - PAIN [None]
  - PARAESTHESIA [None]
  - PLEURAL EFFUSION [None]
  - POST PROCEDURAL COMPLICATION [None]
  - STAPHYLOCOCCAL INFECTION [None]
